FAERS Safety Report 12624116 (Version 1)
Quarter: 2016Q3

REPORT INFORMATION
  Report Type: Spontaneous
  Country: IN (occurrence: IN)
  Receive Date: 20160805
  Receipt Date: 20160805
  Transmission Date: 20161109
  Serious: Yes (Other)
  Sender: FDA-Public Use
  Company Number: IN-ROCHE-1808297

PATIENT
  Age: 63 Year
  Sex: Male

DRUGS (1)
  1. ACCENTRIX [Suspect]
     Active Substance: RANIBIZUMAB
     Indication: CYSTOID MACULAR OEDEMA
     Route: 050
     Dates: start: 20160503

REACTIONS (1)
  - Keratic precipitates [Recovered/Resolved]

NARRATIVE: CASE EVENT DATE: 20160504
